FAERS Safety Report 9957498 (Version 1)
Quarter: 2014Q1

REPORT INFORMATION
  Report Type: Report from Study
  Country: US (occurrence: US)
  Receive Date: 20140304
  Receipt Date: 20140304
  Transmission Date: 20141002
  Serious: No
  Sender: FDA-Public Use
  Company Number: US-ABBVIE-13P-163-1097024-00

PATIENT
  Sex: Male

DRUGS (12)
  1. HUMIRA [Suspect]
     Dates: start: 201207
  2. METFORMIN [Concomitant]
     Indication: DIABETES MELLITUS
  3. LISINOPRIL [Concomitant]
     Indication: BLOOD PRESSURE
  4. CARBIDOPA-LEVODOPA-B [Concomitant]
     Indication: PARKINSON^S DISEASE
     Dosage: 25-100 MG
  5. NORTRIPTYLINE [Concomitant]
     Indication: DEPRESSION
  6. LEVOTHYROXINE [Concomitant]
     Indication: THYROID DISORDER
  7. AMBIEN [Concomitant]
     Indication: INSOMNIA
     Dosage: AT HOUR OF SLEEP
  8. JANUVIA [Concomitant]
     Indication: DIABETES MELLITUS
  9. ZOLOFT [Concomitant]
     Indication: DEPRESSION
  10. CLONAZEPAM [Concomitant]
     Indication: ANXIETY
  11. FISH OIL [Concomitant]
     Indication: PRODUCT USED FOR UNKNOWN INDICATION
  12. ASPIRIN [Concomitant]
     Indication: PRODUCT USED FOR UNKNOWN INDICATION

REACTIONS (1)
  - Injection site pain [Unknown]
